FAERS Safety Report 17359909 (Version 3)
Quarter: 2020Q2

REPORT INFORMATION
  Report Type: Report from Study
  Country: AR (occurrence: AR)
  Receive Date: 20200203
  Receipt Date: 20200506
  Transmission Date: 20200713
  Serious: Yes (Death, Hospitalization, Other)
  Sender: FDA-Public Use
  Company Number: AR-ACTELION-A-CH2019-197315

PATIENT
  Age: 69 Year
  Sex: Female
  Weight: 50 kg

DRUGS (1)
  1. OPSUMIT [Suspect]
     Active Substance: MACITENTAN
     Indication: PULMONARY ARTERIAL HYPERTENSION
     Dosage: 10 MG, QD
     Route: 048
     Dates: start: 20160102

REACTIONS (9)
  - Clavicle fracture [Unknown]
  - Death [Fatal]
  - Cardiac pacemaker insertion [Unknown]
  - Pain [Unknown]
  - Hypoacusis [Unknown]
  - Disease progression [Unknown]
  - Fall [Unknown]
  - Pulmonary arterial hypertension [Unknown]
  - Skin ulcer [Unknown]

NARRATIVE: CASE EVENT DATE: 20200504
